FAERS Safety Report 14181488 (Version 4)
Quarter: 2017Q4

REPORT INFORMATION
  Report Type: Spontaneous
  Country: JP (occurrence: JP)
  Receive Date: 20171112
  Receipt Date: 20171124
  Transmission Date: 20180321
  Serious: Yes (Death, Other)
  Sender: FDA-Public Use
  Company Number: JP-TAKEDA-2017TJP023715

PATIENT
  Age: 83 Year
  Sex: Female

DRUGS (1)
  1. NINLARO [Suspect]
     Active Substance: IXAZOMIB CITRATE
     Indication: PLASMA CELL MYELOMA
     Dosage: 4 MG, UNK
     Route: 048
     Dates: start: 20171004

REACTIONS (3)
  - Plasma cell myeloma [Fatal]
  - Nausea [Fatal]
  - Diarrhoea [Unknown]

NARRATIVE: CASE EVENT DATE: 20171006
